FAERS Safety Report 8332479-7 (Version None)
Quarter: 2012Q2

REPORT INFORMATION
  Report Type: 
  Country: None (occurrence: None)
  Receive Date: 20120503
  Receipt Date: 20120424
  Transmission Date: 20120825
  Serious: No
  Sender: FDA-Public Use
  Company Number: US-PFIZER INC-2012057020

PATIENT
  Sex: Female
  Weight: 56.689 kg

DRUGS (2)
  1. LEVOXYL [Suspect]
     Indication: THYROIDECTOMY
     Dosage: 100 MCG ONCE IN A DAY FOR SIX DAYS A WEEK AND 150MCG ONCE IN A DAY ON SEVENTH DAY
     Route: 048
     Dates: start: 20000302
  2. LEVOXYL [Suspect]
     Dosage: 150 MCG ONCE IN A DAY ON SEVENTH DAY OF A WEEK
     Dates: start: 20000308

REACTIONS (2)
  - HYPERSENSITIVITY [None]
  - PRURITUS GENERALISED [None]
